FAERS Safety Report 9028075 (Version 1)
Quarter: 2013Q1

REPORT INFORMATION
  Report Type: Spontaneous
  Country: US (occurrence: None)
  Receive Date: 20130114
  Receipt Date: 20130114
  Transmission Date: 20140127
  Serious: No
  Sender: FDA-Public Use
  Company Number: None

PATIENT
  Sex: Female

DRUGS (2)
  1. ZICAM ORAL SPRAY [Suspect]
     Indication: FLUSHING
     Dates: start: 201212
  2. ZICAM ORAL SPRAY [Suspect]
     Indication: UPPER RESPIRATORY TRACT INFECTION
     Dates: start: 201212

REACTIONS (2)
  - Anosmia [None]
  - Ageusia [None]
